FAERS Safety Report 7014237 (Version 4)
Quarter: 2012Q4

REPORT INFORMATION
  Report Type: 
  Country: JP (occurrence: JP)
  Receive Date: 20090608
  Receipt Date: 20121126
  Transmission Date: 20130627
  Serious: Yes (Life-Threatening, Hospitalization, Other)
  Sender: FDA-Public Use
  Company Number: JP-PFIZER INC-2009220668

PATIENT
  Age: 4 Year
  Sex: Male
  Weight: 18 kg

DRUGS (10)
  1. GABAPEN [Suspect]
     Indication: INTRACTABLE EPILEPSY
     Dosage: 300 mg, 1x/day
     Route: 048
     Dates: start: 20080813, end: 20081014
  2. GABAPEN [Suspect]
     Dosage: 400 mg, daily
     Route: 048
     Dates: start: 20081015, end: 20081018
  3. SELENICA-R [Suspect]
     Indication: INTRACTABLE EPILEPSY
     Dosage: 400 mg, 1x/day
     Route: 048
     Dates: end: 20081014
  4. SELENICA-R [Suspect]
     Dosage: 200 mg, 1x/day
     Route: 048
     Dates: start: 20081015, end: 20081018
  5. ALEVIATIN [Suspect]
     Indication: INTRACTABLE EPILEPSY
     Dosage: 120 mg, 1x/day
     Route: 048
     Dates: start: 20081001, end: 20081008
  6. HYDANTOL [Suspect]
     Indication: INTRACTABLE EPILEPSY
     Dosage: 125 mg, 1x/day
     Route: 048
     Dates: start: 20081015, end: 20081018
  7. EXCEGRAN [Concomitant]
     Indication: INTRACTABLE EPILEPSY
     Dosage: 150 mg, 1x/day
     Route: 048
     Dates: end: 20081018
  8. MYSTAN [Concomitant]
     Indication: INTRACTABLE EPILEPSY
     Dosage: 5 mg, 1x/day
     Route: 048
     Dates: end: 20081014
  9. MYSTAN [Concomitant]
     Dosage: 8 mg, 1x/day
     Route: 048
     Dates: start: 20081015, end: 20081018
  10. RISPERDAL [Concomitant]
     Indication: HYPERKINESIS
     Dosage: 0.6 g, 1x/day
     Route: 048
     Dates: end: 20081018

REACTIONS (1)
  - Toxic epidermal necrolysis [Recovering/Resolving]
